FAERS Safety Report 10578806 (Version 1)
Quarter: 2014Q4

REPORT INFORMATION
  Report Type: Spontaneous
  Country: CH (occurrence: CH)
  Receive Date: 20141112
  Receipt Date: 20141112
  Transmission Date: 20150529
  Serious: Yes (Hospitalization)
  Sender: FDA-Public Use
  Company Number: CH-JNJFOC-20141105661

PATIENT
  Age: 72 Year
  Sex: Female

DRUGS (3)
  1. REMICADE [Suspect]
     Active Substance: INFLIXIMAB
     Indication: PSORIATIC ARTHROPATHY
     Route: 042
     Dates: start: 2013
  2. REMICADE [Suspect]
     Active Substance: INFLIXIMAB
     Indication: PSORIATIC ARTHROPATHY
     Route: 042
     Dates: start: 20140730, end: 20140731
  3. REMICADE [Suspect]
     Active Substance: INFLIXIMAB
     Indication: PSORIATIC ARTHROPATHY
     Route: 042
     Dates: start: 2009

REACTIONS (8)
  - Dyspnoea exertional [Recovering/Resolving]
  - Urticaria [Recovering/Resolving]
  - Laboratory test abnormal [Recovering/Resolving]
  - Cough [Recovering/Resolving]
  - Dyspnoea [Recovering/Resolving]
  - Lupus-like syndrome [Recovering/Resolving]
  - Fatigue [Recovering/Resolving]
  - Surgery [Unknown]

NARRATIVE: CASE EVENT DATE: 2014
